FAERS Safety Report 16215617 (Version 1)
Quarter: 2019Q2

REPORT INFORMATION
  Report Type: Spontaneous
  Country: US (occurrence: US)
  Receive Date: 20190419
  Receipt Date: 20190419
  Transmission Date: 20190711
  Serious: No
  Sender: FDA-Public Use
  Company Number: US-AMGEN INC.-USASP2019061686

PATIENT
  Age: 25 Year
  Sex: Female

DRUGS (1)
  1. AIMOVIG [Suspect]
     Active Substance: ERENUMAB-AOOE
     Indication: MIGRAINE WITHOUT AURA
     Dosage: 140 MILLIGRAM, QD
     Route: 058
     Dates: start: 2018

REACTIONS (3)
  - Injection site irritation [Recovered/Resolved with Sequelae]
  - Injection site pruritus [Recovered/Resolved with Sequelae]
  - Migraine [Not Recovered/Not Resolved]
